FAERS Safety Report 8365383-9 (Version None)
Quarter: 2012Q2

REPORT INFORMATION
  Report Type: 
  Country: None (occurrence: None)
  Receive Date: 20120516
  Receipt Date: 20120502
  Transmission Date: 20120825
  Serious: Yes (Hospitalization, Other)
  Sender: FDA-Public Use
  Company Number: US-PFIZER INC-2012115005

PATIENT
  Age: 53 Year
  Sex: Female
  Weight: 77.11 kg

DRUGS (3)
  1. MOTRIN IB [Suspect]
     Indication: TOOTH EXTRACTION
     Dosage: 400 MG, 3X/DAY
     Route: 048
  2. IBUPROFEN [Suspect]
     Indication: TOOTH EXTRACTION
     Route: 048
  3. THERAFLU [Suspect]
     Indication: MULTIPLE ALLERGIES
     Dosage: UNSPECIFIED, 2-3 PER WEEK IF NEEDED

REACTIONS (10)
  - VOMITING [None]
  - INFLUENZA [None]
  - ABDOMINAL PAIN UPPER [None]
  - DIARRHOEA [None]
  - DECREASED APPETITE [None]
  - NAUSEA [None]
  - BEDRIDDEN [None]
  - WEIGHT DECREASED [None]
  - HAEMATOCHEZIA [None]
  - CHILLS [None]
